FAERS Safety Report 6980777-1 (Version None)
Quarter: 2010Q3

REPORT INFORMATION
  Report Type: 
  Country: None (occurrence: None)
  Receive Date: 20100910
  Receipt Date: 20100910
  Transmission Date: 20110219
  Serious: Yes (Other)
  Sender: FDA-Public Use
  Company Number: None

PATIENT
  Age: 79 Year
  Sex: Male
  Weight: 69.4003 kg

DRUGS (2)
  1. SPIRIVA [Suspect]
     Indication: COMPUTERISED TOMOGRAM
     Dosage: 18 MCG DAILY (30X) MOUTH INHALE TOTAL 4 TIMES
     Route: 055
     Dates: start: 20100529, end: 20100530
  2. SPIRIVA [Suspect]
     Indication: HYPOXIA
     Dosage: 18 MCG DAILY (30X) MOUTH INHALE TOTAL 4 TIMES
     Route: 055
     Dates: start: 20100529, end: 20100530

REACTIONS (1)
  - HYPERSENSITIVITY [None]
